FAERS Safety Report 9135494 (Version 1)
Quarter: 2013Q1

REPORT INFORMATION
  Report Type: Spontaneous
  Country: GB (occurrence: GB)
  Receive Date: 20130304
  Receipt Date: 20130304
  Transmission Date: 20140127
  Serious: Yes (Other)
  Sender: FDA-Public Use
  Company Number: PHHY2013GB019718

PATIENT
  Age: 23 Year
  Sex: Female
  Weight: 91 kg

DRUGS (4)
  1. TRAMADOL [Suspect]
     Indication: SPINAL PAIN
     Dosage: 50 MG, UNK
     Route: 048
     Dates: start: 20130204, end: 20130209
  2. GABAPENTIN [Concomitant]
  3. DICLOFENAC POTASSIUM [Concomitant]
  4. SOLPADOL [Concomitant]

REACTIONS (2)
  - Anxiety [Recovered/Resolved]
  - Panic attack [Recovered/Resolved]
